FAERS Safety Report 11203406 (Version 1)
Quarter: 2015Q2

REPORT INFORMATION
  Report Type: Spontaneous
  Country: CA (occurrence: CA)
  Receive Date: 20150619
  Receipt Date: 20150619
  Transmission Date: 20150821
  Serious: Yes (Other)
  Sender: FDA-Public Use
  Company Number: CA-ABBVIE-15P-028-1412376-00

PATIENT
  Age: 47 Year
  Sex: Female

DRUGS (1)
  1. MAVIK [Suspect]
     Active Substance: TRANDOLAPRIL
     Indication: HYPERTENSION
     Route: 048

REACTIONS (6)
  - Rash [Unknown]
  - Headache [Unknown]
  - Dyspnoea [Unknown]
  - Hypoaesthesia [Unknown]
  - Muscle tightness [Unknown]
  - Muscle spasms [Unknown]
